FAERS Safety Report 7272781-3 (Version None)
Quarter: 2011Q1

REPORT INFORMATION
  Report Type: 
  Country: None (occurrence: None)
  Receive Date: 20110203
  Receipt Date: 20110126
  Transmission Date: 20110831
  Serious: Yes (Hospitalization)
  Sender: FDA-Public Use
  Company Number: IL-NOVOPROD-322371

PATIENT
  Age: 5 Year
  Sex: Male

DRUGS (1)
  1. NORDITROPIN [Suspect]
     Indication: PRODUCT USED FOR UNKNOWN INDICATION
     Dosage: 0.031 MG/KG, QD
     Dates: start: 20100801

REACTIONS (4)
  - VOMITING [None]
  - INTRACRANIAL VENOUS SINUS THROMBOSIS [None]
  - PYREXIA [None]
  - HEADACHE [None]
